FAERS Safety Report 8376886-5 (Version None)
Quarter: 2012Q2

REPORT INFORMATION
  Report Type: 
  Country: None (occurrence: None)
  Receive Date: 20120522
  Receipt Date: 20120517
  Transmission Date: 20120825
  Serious: Yes (Hospitalization)
  Sender: FDA-Public Use
  Company Number: JP-BAYER-2012-040037

PATIENT
  Age: 61 Year
  Sex: Male
  Weight: 54 kg

DRUGS (5)
  1. NEXAVAR [Suspect]
     Dosage: 200 MG, QID
     Route: 048
     Dates: start: 20120326, end: 20120419
  2. NEXAVAR [Suspect]
     Indication: HEPATIC NEOPLASM MALIGNANT
     Dosage: 200 MG, BID
     Route: 048
     Dates: start: 20120228, end: 20120325
  3. AMOBAN [Concomitant]
     Indication: INSOMNIA
     Dosage: DAILY DOSE 7.5 MG
     Route: 048
     Dates: start: 20090907
  4. BARACLUDE [Concomitant]
     Indication: HEPATITIS B
     Dosage: DAILY DOSE .5 MG
     Route: 048
     Dates: start: 20091228
  5. LANSOPRAZOLE [Concomitant]
     Indication: GASTROOESOPHAGEAL REFLUX DISEASE
     Dosage: DAILY DOSE 15 MG
     Route: 048
     Dates: start: 20110606

REACTIONS (1)
  - HEPATIC FUNCTION ABNORMAL [None]
